FAERS Safety Report 10109880 (Version 2)
Quarter: 2014Q3

REPORT INFORMATION
  Report Type: Spontaneous
  Country: US (occurrence: None)
  Receive Date: 20140421
  Receipt Date: 20140722
  Transmission Date: 20150326
  Serious: No
  Sender: FDA-Public Use
  Company Number: AEGR000372

PATIENT
  Age: 53 Year
  Sex: Female
  Weight: 63.5 kg

DRUGS (6)
  1. JUXTAPID [Suspect]
     Active Substance: LOMITAPIDE MESYLATE
     Indication: TYPE IIA HYPERLIPIDAEMIA
     Route: 048
     Dates: start: 201403, end: 20140401
  2. PLAVIX (CLOPIDOGREL BISULFATE) ONGOING [Concomitant]
  3. CRESTOR (ROSUVASTATIN CALCIUM) ONGOING [Concomitant]
  4. PANTOPRAZOLE (PANTOPRAZOLE SODIUM SESQUIHYDRATE) ONGOING [Concomitant]
  5. NITROSTAT (GLYCERYL TRINITRATE) ONGOING [Concomitant]
  6. METOPROLOL (METOPROLOL TARTRATE) ONGOING [Concomitant]

REACTIONS (2)
  - Vomiting [None]
  - Diarrhoea [None]

NARRATIVE: CASE EVENT DATE: 20140331
